FAERS Safety Report 17103301 (Version 1)
Quarter: 2019Q4

REPORT INFORMATION
  Report Type: Spontaneous
  Country: FR (occurrence: FR)
  Receive Date: 20191203
  Receipt Date: 20191203
  Transmission Date: 20200122
  Serious: Yes (Hospitalization)
  Sender: FDA-Public Use
  Company Number: FR-SUN PHARMACEUTICAL INDUSTRIES LTD-2019RR-229529

PATIENT
  Age: 69 Year
  Sex: Male

DRUGS (7)
  1. LANSOPRAZOLE. [Suspect]
     Active Substance: LANSOPRAZOLE
     Indication: BURN OF INTERNAL ORGANS
     Dosage: 30 MILLIGRAM, DAILY
     Route: 048
  2. NIVESTIM [Suspect]
     Active Substance: FILGRASTIM
     Indication: COLONY STIMULATING FACTOR THERAPY
     Dosage: 1 INJECTION/J PENDANT 5 JOURS SI BESOIN (1)
     Route: 042
  3. GAVISCON (SODIUM ALGINATE\SODIUM BICARBONATE) [Suspect]
     Active Substance: SODIUM ALGINATE\SODIUM BICARBONATE
     Indication: BURN OF INTERNAL ORGANS
     Dosage: 1 DOSAGE FORM, UNK
     Route: 048
  4. BACTRIM [Suspect]
     Active Substance: SULFAMETHOXAZOLE\TRIMETHOPRIM
     Indication: ANTIBIOTIC PROPHYLAXIS
     Dosage: 1 CP LUNDI, MERCREDI, VENDREDI ()
     Route: 048
  5. IMBRUVICA [Suspect]
     Active Substance: IBRUTINIB
     Indication: CHRONIC LYMPHOCYTIC LEUKAEMIA
     Dosage: 420 MILLIGRAM, DAILY
     Route: 048
     Dates: start: 201812, end: 20190913
  6. VALACICLOVIR [Suspect]
     Active Substance: VALACYCLOVIR HYDROCHLORIDE
     Indication: HERPES VIRUS INFECTION
     Dosage: 1000 MILLIGRAM, DAILY
     Route: 048
  7. FOLINORAL [Suspect]
     Active Substance: LEUCOVORIN CALCIUM
     Indication: PRODUCT USED FOR UNKNOWN INDICATION
     Dosage: 25 MILLIGRAM, 1/WEEK
     Route: 048

REACTIONS (1)
  - Pericarditis [Recovered/Resolved]

NARRATIVE: CASE EVENT DATE: 20190913
